FAERS Safety Report 4501378-0 (Version None)
Quarter: 2004Q4

REPORT INFORMATION
  Report Type: 
  Country: None (occurrence: None)
  Receive Date: 20041110
  Receipt Date: 20041031
  Transmission Date: 20050328
  Serious: Yes (Other)
  Sender: FDA-Public Use
  Company Number: 2004242459US

PATIENT
  Age: 52 Year
  Sex: Male
  Weight: 83.9 kg

DRUGS (10)
  1. CELEBREX [Suspect]
     Indication: PAIN
     Dosage: BID, ORAL
     Route: 048
     Dates: start: 20040901, end: 20040101
  2. VISTARIL [Suspect]
     Dosage: 50 MG, IV
     Route: 042
     Dates: start: 19710101
  3. MS CONTIN [Concomitant]
  4. VALIUM [Concomitant]
  5. RESTORIL [Concomitant]
  6. ALLEGRA-D [Concomitant]
  7. PRIMIDONE [Concomitant]
  8. DILANTIN [Concomitant]
  9. TETRACYCLINE [Concomitant]
  10. CALCIUM [Concomitant]

REACTIONS (5)
  - INJURY [None]
  - IRRITABILITY [None]
  - MUSCULOSKELETAL DISORDER [None]
  - RASH MACULAR [None]
  - TENSION [None]
